APPROVED DRUG PRODUCT: PRIMAQUINE PHOSPHATE
Active Ingredient: PRIMAQUINE PHOSPHATE
Strength: EQ 15MG BASE
Dosage Form/Route: TABLET;ORAL
Application: A204476 | Product #001 | TE Code: AB
Applicant: UNICHEM LABORATORIES LTD
Approved: Feb 25, 2014 | RLD: No | RS: No | Type: RX